FAERS Safety Report 13039954 (Version 3)
Quarter: 2017Q1

REPORT INFORMATION
  Report Type: Spontaneous
  Country: US (occurrence: US)
  Receive Date: 20161219
  Receipt Date: 20170113
  Transmission Date: 20170428
  Serious: Yes (Other)
  Sender: FDA-Public Use
  Company Number: US-SA-2016SA227561

PATIENT
  Age: 88 Year
  Sex: Female
  Weight: 86.18 kg

DRUGS (1)
  1. GOLD BOND ULTIMATE DIABETICS [Suspect]
     Active Substance: DIMETHICONE\PETROLATUM
     Indication: DIABETES MELLITUS
     Route: 065
     Dates: start: 20161130, end: 20161130

REACTIONS (5)
  - Skin reaction [Not Recovered/Not Resolved]
  - Secretion discharge [Not Recovered/Not Resolved]
  - Pain in extremity [Not Recovered/Not Resolved]
  - Dry skin [Not Recovered/Not Resolved]
  - Cellulitis [Not Recovered/Not Resolved]

NARRATIVE: CASE EVENT DATE: 20161130
